FAERS Safety Report 23526731 (Version 1)
Quarter: 2024Q1

REPORT INFORMATION
  Report Type: Spontaneous
  Country: US (occurrence: None)
  Receive Date: 20240214
  Receipt Date: 20240214
  Transmission Date: 20240410
  Serious: Yes (Death, Hospitalization)
  Sender: FDA-Public Use
  Company Number: None

PATIENT
  Age: 77 Year
  Sex: Male

DRUGS (2)
  1. LENALIDOMIDE [Suspect]
     Active Substance: LENALIDOMIDE
     Indication: Plasma cell myeloma
     Dosage: FREQUENCY : DAILY;?
     Route: 048
     Dates: start: 20230802, end: 20231117
  2. BORTEZOMIB [Suspect]
     Active Substance: BORTEZOMIB

REACTIONS (9)
  - Encephalopathy [None]
  - Hypophagia [None]
  - Fall [None]
  - Acute kidney injury [None]
  - Pneumonia [None]
  - Sepsis [None]
  - Dysphagia [None]
  - Respiratory failure [None]
  - Shock [None]

NARRATIVE: CASE EVENT DATE: 20240116
